FAERS Safety Report 13820901 (Version 1)
Quarter: 2017Q3

REPORT INFORMATION
  Report Type: Spontaneous
  Country: US (occurrence: US)
  Receive Date: 20170801
  Receipt Date: 20170801
  Transmission Date: 20171127
  Serious: No
  Sender: FDA-Public Use
  Company Number: US-GLENMARK PHARMACEUTICALS-2017GMK025898

PATIENT

DRUGS (2)
  1. MUPIROCIN. [Suspect]
     Active Substance: MUPIROCIN
     Indication: RASH
     Dosage: AROUND THE EYELIDS
     Route: 061
     Dates: start: 20170110, end: 20170110
  2. MUPIROCIN. [Suspect]
     Active Substance: MUPIROCIN
     Indication: SKIN BACTERIAL INFECTION

REACTIONS (4)
  - Application site pain [Recovered/Resolved]
  - Condition aggravated [Recovered/Resolved]
  - Application site pruritus [Recovered/Resolved]
  - Product use in unapproved indication [Unknown]

NARRATIVE: CASE EVENT DATE: 20170110
